FAERS Safety Report 17854138 (Version 4)
Quarter: 2020Q3

REPORT INFORMATION
  Report Type: Spontaneous
  Country: US (occurrence: US)
  Receive Date: 20200603
  Receipt Date: 20200708
  Transmission Date: 20201103
  Serious: No
  Sender: FDA-Public Use
  Company Number: US-HTU-2020US020611

PATIENT
  Age: 70 Year
  Sex: Female

DRUGS (14)
  1. TRIAMCINOLONE ACETONIDE. [Concomitant]
     Active Substance: TRIAMCINOLONE ACETONIDE
  2. MONTELUKAST SODIUM. [Concomitant]
     Active Substance: MONTELUKAST SODIUM
  3. TRAMADOL HCL/ACETAMINOPHEN [Concomitant]
     Active Substance: ACETAMINOPHEN\TRAMADOL HYDROCHLORIDE
  4. BENADRYL [Concomitant]
     Active Substance: DIPHENHYDRAMINE HYDROCHLORIDE
  5. MULTIVITAMIN                       /07504101/ [Concomitant]
     Active Substance: VITAMINS
  6. FLONASE                            /00908302/ [Concomitant]
     Active Substance: MOMETASONE FUROATE
  7. LOSARTAN POTASSIUM. [Concomitant]
     Active Substance: LOSARTAN POTASSIUM
  8. ALBUTEROL SULFATE. [Concomitant]
     Active Substance: ALBUTEROL SULFATE
  9. CALCIUM [Concomitant]
     Active Substance: CALCIUM
  10. VALCHLOR [Suspect]
     Active Substance: MECHLORETHAMINE
     Indication: CUTANEOUS T-CELL LYMPHOMA
     Dosage: UNK, QD
     Route: 061
     Dates: start: 20200106
  11. MELOXICAM. [Concomitant]
     Active Substance: MELOXICAM
  12. PROZAC [Concomitant]
     Active Substance: FLUOXETINE HYDROCHLORIDE
  13. ZYRTEC [Concomitant]
     Active Substance: CETIRIZINE HYDROCHLORIDE
  14. AMLODIPINE BESILATE [Concomitant]
     Active Substance: AMLODIPINE BESYLATE

REACTIONS (4)
  - Application site reaction [Recovering/Resolving]
  - Condition aggravated [Recovering/Resolving]
  - Application site discolouration [Unknown]
  - Rash erythematous [Unknown]

NARRATIVE: CASE EVENT DATE: 202005
